FAERS Safety Report 24434844 (Version 1)
Quarter: 2024Q4

REPORT INFORMATION
  Report Type: Spontaneous
  Country: JP (occurrence: JP)
  Receive Date: 20241014
  Receipt Date: 20241014
  Transmission Date: 20250114
  Serious: Yes (Death, Other)
  Sender: ALEXION PHARMACEUTICALS
  Company Number: JP-ASTRAZENECA-240106641_012620_P_1

PATIENT

DRUGS (8)
  1. TRUQAP [Suspect]
     Active Substance: CAPIVASERTIB
     Indication: Breast cancer
     Dosage: 200 MILLIGRAM
  2. TRUQAP [Suspect]
     Active Substance: CAPIVASERTIB
     Dosage: 200 MILLIGRAM
  3. TRUQAP [Suspect]
     Active Substance: CAPIVASERTIB
     Dosage: 200 MILLIGRAM
  4. TRUQAP [Suspect]
     Active Substance: CAPIVASERTIB
     Dosage: 200 MILLIGRAM
  5. FULVESTRANT [Suspect]
     Active Substance: FULVESTRANT
     Indication: Breast cancer
     Dosage: 250 MILLIGRAM
  6. FULVESTRANT [Suspect]
     Active Substance: FULVESTRANT
     Dosage: 250 MILLIGRAM
  7. FULVESTRANT [Suspect]
     Active Substance: FULVESTRANT
     Dosage: 250 MILLIGRAM
  8. FULVESTRANT [Suspect]
     Active Substance: FULVESTRANT
     Dosage: 250 MILLIGRAM

REACTIONS (1)
  - Death [Fatal]
